FAERS Safety Report 6697390-6 (Version None)
Quarter: 2010Q2

REPORT INFORMATION
  Report Type: 
  Country: None (occurrence: None)
  Receive Date: 20100426
  Receipt Date: 20100412
  Transmission Date: 20101027
  Serious: Yes (Hospitalization)
  Sender: FDA-Public Use
  Company Number: SG-WATSON-2010-05394

PATIENT
  Age: 38 Year
  Sex: Female

DRUGS (5)
  1. FLUOXETINE [Suspect]
     Indication: DRUG USE FOR UNKNOWN INDICATION
     Dosage: 40 MG, DAILY
  2. VALPROIC ACID [Suspect]
     Indication: MENTAL RETARDATION
     Dosage: 1 1/2 G, UNK
  3. QUETIAPINE [Concomitant]
     Indication: DRUG USE FOR UNKNOWN INDICATION
     Dosage: 600 MG, DAILY
  4. FLUPHENAZINE DECANOATE [Concomitant]
     Indication: DRUG USE FOR UNKNOWN INDICATION
     Dosage: 25 MG, MONTHLY
     Route: 030
  5. SODIUM VALPROATE [Concomitant]
     Indication: DRUG USE FOR UNKNOWN INDICATION
     Dosage: 1.5 G, DAILY

REACTIONS (7)
  - AGITATION [None]
  - DRUG INTERACTION [None]
  - DRUG LEVEL INCREASED [None]
  - GAIT DISTURBANCE [None]
  - HYPERAMMONAEMIA [None]
  - MUSCULAR WEAKNESS [None]
  - SEDATION [None]
